FAERS Safety Report 25491736 (Version 1)
Quarter: 2025Q2

REPORT INFORMATION
  Report Type: Spontaneous
  Country: US (occurrence: US)
  Receive Date: 20250630
  Receipt Date: 20250630
  Transmission Date: 20250717
  Serious: No
  Sender: BRISTOL-MYERS SQUIBB COMPANY
  Company Number: US-BRISTOL-MYERS SQUIBB COMPANY-2025-091533

PATIENT
  Age: 78 Year
  Sex: Male

DRUGS (1)
  1. LENALIDOMIDE [Suspect]
     Active Substance: LENALIDOMIDE
     Indication: Blood test abnormal
     Dosage: TAKE 1 CAPSULE BY MOUTH EVERY DAY FOR 21 DAYS FOLLOWED BY
     Route: 048

REACTIONS (4)
  - Fall [Recovering/Resolving]
  - Joint injury [Recovering/Resolving]
  - Joint stiffness [Recovering/Resolving]
  - Contusion [Recovering/Resolving]
